FAERS Safety Report 5627857-0 (Version None)
Quarter: 2008Q1

REPORT INFORMATION
  Report Type: 
  Country: None (occurrence: None)
  Receive Date: 20080213
  Receipt Date: 20080213
  Transmission Date: 20080703
  Serious: No
  Sender: FDA-Public Use
  Company Number: None

PATIENT
  Sex: Male
  Weight: 74.8435 kg

DRUGS (1)
  1. ZICAM GEL SWABS ZICUM GLUCONICUM 2 X ZICAM LLC, MATRIX INITIATIVES, IN [Suspect]
     Indication: NASOPHARYNGITIS
     Dates: start: 20031001, end: 20071215

REACTIONS (2)
  - AGEUSIA [None]
  - ANOSMIA [None]
